FAERS Safety Report 8055399-4 (Version None)
Quarter: 2011Q4

REPORT INFORMATION
  Report Type: 
  Country: None (occurrence: None)
  Receive Date: 20111219
  Receipt Date: 20110127
  Transmission Date: 20120403
  Serious: Yes (Other)
  Sender: FDA-Public Use
  Company Number: WAES 1101USA03395

PATIENT
  Age: 50 Year
  Sex: Female

DRUGS (3)
  1. METFORMIN HCL [Concomitant]
  2. JANUVIA [Suspect]
     Indication: DIABETES MELLITUS
     Dosage: /PO
     Route: 048
     Dates: start: 20101201, end: 20110124
  3. INSULIN [Concomitant]

REACTIONS (2)
  - PANCREATITIS [None]
  - LIPASE INCREASED [None]
